FAERS Safety Report 8326018-4 (Version None)
Quarter: 2012Q2

REPORT INFORMATION
  Report Type: 
  Country: None (occurrence: None)
  Receive Date: 20120501
  Receipt Date: 20100610
  Transmission Date: 20120825
  Serious: No
  Sender: FDA-Public Use
  Company Number: US-TEVA-2010002971

PATIENT
  Sex: Female
  Weight: 79.45 kg

DRUGS (9)
  1. NUVIGIL [Suspect]
     Indication: SLEEP APNOEA SYNDROME
     Dosage: 150 MILLIGRAM;
     Route: 048
     Dates: start: 20100513, end: 20100519
  2. WARFARIN SODIUM [Concomitant]
     Dates: start: 20090601
  3. GLYBURIDE [Concomitant]
     Dates: start: 20000101
  4. NORVASC [Concomitant]
     Dates: start: 20050101
  5. LISINOPRIL [Concomitant]
     Dates: start: 20000101
  6. NUVIGIL [Suspect]
     Dosage: 75 MILLIGRAM;
     Route: 048
     Dates: start: 20100520
  7. SIMVASTATIN [Concomitant]
     Dates: start: 20050101
  8. METFORMIN HCL [Concomitant]
     Dates: start: 20000101
  9. BENADRYL [Concomitant]

REACTIONS (2)
  - INSOMNIA [None]
  - INTENTIONAL DRUG MISUSE [None]
